FAERS Safety Report 7545422-5 (Version None)
Quarter: 2011Q2

REPORT INFORMATION
  Report Type: 
  Country: None (occurrence: None)
  Receive Date: 20110614
  Receipt Date: 20110606
  Transmission Date: 20111010
  Serious: Yes (Death, Other)
  Sender: FDA-Public Use
  Company Number: DE-GENZYME-FLUD-1001220

PATIENT
  Age: 8 Year
  Sex: Female

DRUGS (11)
  1. ANTI-THYMOCYTE GLOBULIN NOS [Suspect]
     Indication: STEM CELL TRANSPLANT
     Dosage: UNK
     Route: 065
  2. INDIUM (111 IN) [Suspect]
     Indication: STEM CELL TRANSPLANT
  3. INDIUM (111 IN) [Suspect]
     Indication: COMBINED IMMUNODEFICIENCY
     Dosage: 71 +/- 28 MBQ
     Route: 042
  4. CYCLOSPORINE [Concomitant]
     Indication: PROPHYLAXIS AGAINST GRAFT VERSUS HOST DISEASE
     Dosage: UNK
     Route: 065
  5. FLUDARA [Suspect]
     Indication: COMBINED IMMUNODEFICIENCY
  6. ANTI-THYMOCYTE GLOBULIN NOS [Suspect]
     Indication: COMBINED IMMUNODEFICIENCY
  7. YTTRIUM (90 Y) [Suspect]
     Indication: COMBINED IMMUNODEFICIENCY
  8. FLUDARA [Suspect]
     Indication: STEM CELL TRANSPLANT
     Dosage: 160 MG/M2, UNK
     Route: 065
  9. MELPHALAN HYDROCHLORIDE [Suspect]
     Indication: STEM CELL TRANSPLANT
     Dosage: 140 MG/M2, UNK
     Route: 065
  10. YTTRIUM (90 Y) [Suspect]
     Indication: STEM CELL TRANSPLANT
     Dosage: UNK
     Route: 042
  11. MELPHALAN HYDROCHLORIDE [Suspect]
     Indication: COMBINED IMMUNODEFICIENCY

REACTIONS (5)
  - INFECTION [None]
  - PANCYTOPENIA [None]
  - ADENOVIRUS INFECTION [None]
  - CHRONIC GRAFT VERSUS HOST DISEASE [None]
  - EPSTEIN-BARR VIRUS INFECTION [None]
